FAERS Safety Report 10780870 (Version 2)
Quarter: 2015Q2

REPORT INFORMATION
  Report Type: Report from Study
  Country: US (occurrence: US)
  Receive Date: 20150210
  Receipt Date: 20150615
  Transmission Date: 20150821
  Serious: Yes (Other)
  Sender: FDA-Public Use
  Company Number: US-SA-2014SA116409

PATIENT
  Age: 28 Year
  Sex: Male

DRUGS (1)
  1. AUBAGIO [Suspect]
     Active Substance: TERIFLUNOMIDE
     Indication: MULTIPLE SCLEROSIS
     Route: 048
     Dates: start: 20140801

REACTIONS (4)
  - Acne [Recovering/Resolving]
  - Body temperature increased [Recovering/Resolving]
  - Self-injurious ideation [Not Recovered/Not Resolved]
  - Dyskinesia [Recovering/Resolving]
